FAERS Safety Report 6034466-0 (Version None)
Quarter: 2009Q1

REPORT INFORMATION
  Report Type: 
  Country: None (occurrence: None)
  Receive Date: 20090109
  Receipt Date: 20090109
  Transmission Date: 20090719
  Serious: Yes (Hospitalization)
  Sender: FDA-Public Use
  Company Number: None

PATIENT
  Sex: Female

DRUGS (1)
  1. TARCEVA [Suspect]
     Indication: PANCREATIC CARCINOMA
     Dosage: 150MG ONCE DAILY BY MOUTH
     Route: 048
     Dates: start: 20081218, end: 20090103

REACTIONS (3)
  - DYSGEUSIA [None]
  - STOMATITIS [None]
  - URTICARIA [None]
